FAERS Safety Report 11910236 (Version 3)
Quarter: 2016Q1

REPORT INFORMATION
  Report Type: Spontaneous
  Country: FR (occurrence: FR)
  Receive Date: 20160112
  Receipt Date: 20160126
  Transmission Date: 20160526
  Serious: Yes (Death)
  Sender: FDA-Public Use
  Company Number: FR-SA-2016SA003669

PATIENT
  Age: 45 Year
  Sex: Male
  Weight: 49 kg

DRUGS (1)
  1. FABRAZYME [Suspect]
     Active Substance: AGALSIDASE BETA
     Indication: FABRY^S DISEASE
     Dosage: THE TREATMENT WAS ADMINISTERED EVERY 14 DAYS, 2 BOTTLES IN ALTERNATIVELY WITH ONE BOTTLE.
     Route: 042
     Dates: start: 199912, end: 20151106

REACTIONS (1)
  - Myocardial infarction [Fatal]

NARRATIVE: CASE EVENT DATE: 20151121
